FAERS Safety Report 9269247 (Version 2)
Quarter: 2013Q2

REPORT INFORMATION
  Report Type: Spontaneous
  Country: US (occurrence: US)
  Receive Date: 20130503
  Receipt Date: 20130523
  Transmission Date: 20140414
  Serious: No
  Sender: FDA-Public Use
  Company Number: US-PFIZER INC-2013133261

PATIENT
  Age: 83 Year
  Sex: Female
  Weight: 67.12 kg

DRUGS (2)
  1. NORVASC [Suspect]
     Indication: HYPERTENSION
     Dosage: 10 MG, 1X/DAY
  2. CLONIDINE [Concomitant]
     Dosage: HALF TABLET IN MORNING AND HALF TABLET IN AFTERNOON

REACTIONS (1)
  - Muscle spasms [Unknown]
